FAERS Safety Report 24054065 (Version 1)
Quarter: 2024Q3

REPORT INFORMATION
  Report Type: Spontaneous
  Country: RU (occurrence: RU)
  Receive Date: 20240705
  Receipt Date: 20240705
  Transmission Date: 20241016
  Serious: Yes (Life-Threatening, Hospitalization)
  Sender: ACCORD
  Company Number: RU-MLMSERVICE-20240617-PI101903-00140-1

PATIENT
  Age: 6 Month
  Sex: Female

DRUGS (10)
  1. CISPLATIN [Suspect]
     Active Substance: CISPLATIN
     Indication: Metastases to lymph nodes
     Dosage: FIRST 3 CHEMOTHERAPY CYCLES (N4, N4, AND N5)
  2. ETOPOSIDE [Suspect]
     Active Substance: ETOPOSIDE
     Indication: Metastases to lung
     Dosage: FIRST 3 CHEMOTHERAPY CYCLES (N4, N4, AND N5)
  3. ETOPOSIDE [Suspect]
     Active Substance: ETOPOSIDE
     Indication: Neuroblastoma
     Dosage: FIRST 3 CHEMOTHERAPY CYCLES (N4, N4, AND N5)
  4. ETOPOSIDE [Suspect]
     Active Substance: ETOPOSIDE
     Indication: Metastases to bone
     Dosage: FIRST 3 CHEMOTHERAPY CYCLES (N4, N4, AND N5)
  5. ETOPOSIDE [Suspect]
     Active Substance: ETOPOSIDE
     Indication: Metastases to lymph nodes
     Dosage: FIRST 3 CHEMOTHERAPY CYCLES (N4, N4, AND N5)
  6. ETOPOSIDE [Suspect]
     Active Substance: ETOPOSIDE
     Indication: Metastases to bone marrow
     Dosage: FIRST 3 CHEMOTHERAPY CYCLES (N4, N4, AND N5)
  7. CISPLATIN [Suspect]
     Active Substance: CISPLATIN
     Indication: Metastases to bone
     Dosage: FIRST 3 CHEMOTHERAPY CYCLES (N4, N4, AND N5)
  8. CISPLATIN [Suspect]
     Active Substance: CISPLATIN
     Indication: Neuroblastoma
     Dosage: FIRST 3 CHEMOTHERAPY CYCLES (N4, N4, AND N5)
  9. CISPLATIN [Suspect]
     Active Substance: CISPLATIN
     Indication: Metastases to lung
     Dosage: FIRST 3 CHEMOTHERAPY CYCLES (N4, N4, AND N5)
  10. CISPLATIN [Suspect]
     Active Substance: CISPLATIN
     Indication: Metastases to bone marrow
     Dosage: FIRST 3 CHEMOTHERAPY CYCLES (N4, N4, AND N5)

REACTIONS (27)
  - Anal tinea [Unknown]
  - Proteus infection [Unknown]
  - Alpha haemolytic streptococcal infection [Unknown]
  - Enterobacter infection [Recovered/Resolved]
  - Ascites [Unknown]
  - Klebsiella infection [Unknown]
  - Neisseria infection [Unknown]
  - Weight decreased [Recovering/Resolving]
  - Oesophageal haemorrhage [Unknown]
  - Dyspepsia [Recovered/Resolved]
  - Multiple organ dysfunction syndrome [Unknown]
  - Escherichia infection [Unknown]
  - Hypoalbuminaemia [Unknown]
  - Anal inflammation [Unknown]
  - Malabsorption [Unknown]
  - Vomiting [Unknown]
  - Device related infection [Unknown]
  - Oesophagitis [Recovered/Resolved]
  - Nausea [Unknown]
  - Staphylococcal infection [Unknown]
  - Enterococcal infection [Unknown]
  - Clostridium difficile colitis [Recovered/Resolved]
  - Pseudomonas infection [Unknown]
  - Stomatitis [Recovered/Resolved]
  - Neutropenia [Recovered/Resolved]
  - Disseminated intravascular coagulation [Unknown]
  - Diarrhoea [Unknown]
